FAERS Safety Report 15378817 (Version 1)
Quarter: 2018Q3

REPORT INFORMATION
  Report Type: Spontaneous
  Country: US (occurrence: US)
  Receive Date: 20180913
  Receipt Date: 20180913
  Transmission Date: 20181010
  Serious: No
  Sender: FDA-Public Use
  Company Number: US-GLAXOSMITHKLINE-US2018161619

PATIENT
  Sex: Female

DRUGS (1)
  1. NUCALA [Suspect]
     Active Substance: MEPOLIZUMAB
     Indication: ASTHMA
     Route: 058

REACTIONS (6)
  - Cough [Unknown]
  - Drug effect decreased [Unknown]
  - Drug ineffective [Unknown]
  - Pyrexia [Unknown]
  - Asthma [Unknown]
  - Dyspnoea [Unknown]
